FAERS Safety Report 19847665 (Version 3)
Quarter: 2022Q1

REPORT INFORMATION
  Report Type: Spontaneous
  Country: HR (occurrence: HR)
  Receive Date: 20210917
  Receipt Date: 20220202
  Transmission Date: 20220423
  Serious: Yes (Other)
  Sender: FDA-Public Use
  Company Number: HR-009507513-2109HRV003813

PATIENT
  Age: 45 Year
  Sex: Female

DRUGS (4)
  1. KEYTRUDA [Suspect]
     Active Substance: PEMBROLIZUMAB
     Dosage: UNK
     Dates: start: 20180427, end: 20180427
  2. KEYTRUDA [Suspect]
     Active Substance: PEMBROLIZUMAB
     Dosage: UNK
     Dates: start: 20210827, end: 20210827
  3. KEYTRUDA [Suspect]
     Active Substance: PEMBROLIZUMAB
     Dosage: UNK
     Dates: start: 20210915, end: 20210915
  4. KEYTRUDA [Suspect]
     Active Substance: PEMBROLIZUMAB
     Dosage: UNK, EVERY 6 WEEKS

REACTIONS (9)
  - Rheumatoid arthritis [Unknown]
  - CSF protein increased [Unknown]
  - Malignant neoplasm progression [Unknown]
  - Neuralgia [Unknown]
  - Intervertebral disc disorder [Unknown]
  - Intervertebral disc degeneration [Unknown]
  - Therapy partial responder [Unknown]
  - Paraesthesia [Recovered/Resolved]
  - Inappropriate schedule of product administration [Unknown]

NARRATIVE: CASE EVENT DATE: 20180802
